FAERS Safety Report 11603702 (Version 1)
Quarter: 2015Q4

REPORT INFORMATION
  Report Type: Spontaneous
  Country: US (occurrence: US)
  Receive Date: 20151007
  Receipt Date: 20151007
  Transmission Date: 20160304
  Serious: No
  Sender: FDA-Public Use
  Company Number: US-ASTRAZENECA-2015SE93067

PATIENT
  Sex: Female
  Weight: 75.3 kg

DRUGS (2)
  1. BYDUREON [Suspect]
     Active Substance: EXENATIDE
     Route: 058
  2. METFORMIN [Concomitant]
     Active Substance: METFORMIN HYDROCHLORIDE
     Route: 048

REACTIONS (5)
  - Weight decreased [Unknown]
  - Skin mass [Unknown]
  - Nodule [Not Recovered/Not Resolved]
  - Thrombosis [Not Recovered/Not Resolved]
  - Injection site nodule [Not Recovered/Not Resolved]
